FAERS Safety Report 19654254 (Version 2)
Quarter: 2021Q4

REPORT INFORMATION
  Report Type: Spontaneous
  Country: US (occurrence: US)
  Receive Date: 20210804
  Receipt Date: 20211028
  Transmission Date: 20220304
  Serious: No
  Sender: FDA-Public Use
  Company Number: US-BLUEPRINT MEDICINES CORPORATION-SP-US-2021-001108

PATIENT
  Age: 47 Year
  Sex: Male

DRUGS (1)
  1. AYVAKIT [Suspect]
     Active Substance: AVAPRITINIB
     Indication: Gastrointestinal stromal tumour
     Route: 048
     Dates: start: 20210710

REACTIONS (6)
  - Fatigue [Unknown]
  - Diarrhoea [Unknown]
  - Swelling face [Unknown]
  - Nausea [Unknown]
  - Product dose omission in error [Unknown]
  - Memory impairment [Unknown]
